FAERS Safety Report 8453600-6 (Version None)
Quarter: 2012Q2

REPORT INFORMATION
  Report Type: 
  Country: None (occurrence: None)
  Receive Date: 20120620
  Receipt Date: 20120618
  Transmission Date: 20120825
  Serious: Yes (Hospitalization, Other)
  Sender: FDA-Public Use
  Company Number: JP-MERCK-1204USA01855

PATIENT
  Age: 60 Year
  Sex: Female

DRUGS (10)
  1. ENBREL [Suspect]
     Indication: RHEUMATOID ARTHRITIS
     Route: 058
     Dates: start: 20101015, end: 20120201
  2. VOLTAREN-XR [Concomitant]
     Route: 065
  3. LANSOPRAZOLE [Concomitant]
     Route: 048
  4. MICARDIS [Suspect]
     Route: 065
  5. VOLTAREN [Concomitant]
     Route: 065
  6. BONOTEO [Concomitant]
     Route: 065
  7. BASEN [Suspect]
     Route: 065
  8. LIPITOR [Concomitant]
     Route: 065
  9. LANSOPRAZOLE [Concomitant]
     Route: 048
  10. JANUVIA [Suspect]
     Route: 048

REACTIONS (8)
  - PYREXIA [None]
  - SEPTIC SHOCK [None]
  - DECREASED APPETITE [None]
  - MULTI-ORGAN FAILURE [None]
  - BLOOD PRESSURE DIASTOLIC DECREASED [None]
  - NASOPHARYNGITIS [None]
  - IMMUNOSUPPRESSION [None]
  - MALAISE [None]
